FAERS Safety Report 7717071-7 (Version None)
Quarter: 2011Q3

REPORT INFORMATION
  Report Type: 
  Country: None (occurrence: None)
  Receive Date: 20110830
  Receipt Date: 20110824
  Transmission Date: 20111222
  Serious: Yes (Hospitalization, Other)
  Sender: FDA-Public Use
  Company Number: FI-BIOGENIDEC-2011BI031047

PATIENT
  Age: 29 Year
  Sex: Female

DRUGS (5)
  1. TITSANIDIN [Concomitant]
  2. TYSABRI [Suspect]
     Indication: RELAPSING-REMITTING MULTIPLE SCLEROSIS
     Route: 042
     Dates: start: 20101216, end: 20110617
  3. MIRENA [Concomitant]
  4. TYSABRI [Suspect]
     Route: 042
     Dates: start: 20110824
  5. IBUPROFEN [Concomitant]

REACTIONS (1)
  - GILBERT'S SYNDROME [None]
